FAERS Safety Report 4744897-4 (Version None)
Quarter: 2005Q3

REPORT INFORMATION
  Report Type: 
  Country: None (occurrence: None)
  Receive Date: 20050811
  Receipt Date: 20050802
  Transmission Date: 20060218
  Serious: Yes (Hospitalization)
  Sender: FDA-Public Use
  Company Number: 216617

PATIENT
  Age: 64 Year
  Sex: Female
  Weight: 66.7 kg

DRUGS (1)
  1. HERCEPTIN [Suspect]
     Indication: BREAST CANCER METASTATIC
     Dosage: 8 MG/KG, Q3W, INTRAVENOUS
     Route: 042
     Dates: start: 20050429

REACTIONS (2)
  - CHEST PAIN [None]
  - PYREXIA [None]
